FAERS Safety Report 8565194-5 (Version None)
Quarter: 2012Q3

REPORT INFORMATION
  Report Type: 
  Country: None (occurrence: None)
  Receive Date: 20120803
  Receipt Date: 20120726
  Transmission Date: 20120928
  Serious: Yes (Hospitalization, Congenital Anomaly)
  Sender: FDA-Public Use
  Company Number: US-GLAXOSMITHKLINE-A0950702A

PATIENT
  Sex: Male
  Weight: 3.9 kg

DRUGS (4)
  1. ZOFRAN [Concomitant]
  2. PAXIL [Suspect]
     Indication: MOOD SWINGS
     Dosage: 40MG UNKNOWN
     Route: 064
  3. PHENERGAN HCL [Concomitant]
  4. WELLBUTRIN SR [Concomitant]

REACTIONS (5)
  - ATRIAL SEPTAL DEFECT [None]
  - CONGENITAL PULMONARY HYPERTENSION [None]
  - PATENT DUCTUS ARTERIOSUS [None]
  - FOETAL EXPOSURE DURING PREGNANCY [None]
  - PERSISTENT FOETAL CIRCULATION [None]
